FAERS Safety Report 9189442 (Version 1)
Quarter: 2013Q1

REPORT INFORMATION
  Report Type: Spontaneous
  Country: MX (occurrence: MX)
  Receive Date: 20130326
  Receipt Date: 20130326
  Transmission Date: 20140127
  Serious: Yes (Death)
  Sender: FDA-Public Use
  Company Number: PHHY2013MX029041

PATIENT
  Age: 86 Year
  Sex: Male

DRUGS (2)
  1. EXFORGE [Suspect]
     Indication: HYPERTENSION
     Dosage: 1 DF (VAL 160MG, AMLO 10MG) DAILY
     Route: 048
     Dates: start: 20110403
  2. CONCOR [Concomitant]
     Indication: HYPERTENSION
     Dosage: 1 DF, DAILY
     Dates: start: 20110405

REACTIONS (1)
  - Death [Fatal]
